FAERS Safety Report 13037298 (Version 1)
Quarter: 2016Q4

REPORT INFORMATION
  Report Type: Spontaneous
  Country: US (occurrence: US)
  Receive Date: 20161216
  Receipt Date: 20161216
  Transmission Date: 20170207
  Serious: No
  Sender: FDA-Public Use
  Company Number: US-GLAXOSMITHKLINE-US2016186781

PATIENT
  Sex: Female

DRUGS (5)
  1. COREG CR [Suspect]
     Active Substance: CARVEDILOL PHOSPHATE
     Indication: PRODUCT USED FOR UNKNOWN INDICATION
     Dosage: 20 MG, UNK
     Route: 048
  2. MINERALS [Concomitant]
     Active Substance: MINERALS
  3. ECOTRIN [Concomitant]
     Active Substance: ASPIRIN
  4. COREG CR [Suspect]
     Active Substance: CARVEDILOL PHOSPHATE
     Dosage: 10 MG, BID
     Route: 048
     Dates: start: 2014
  5. POTASSIUM [Concomitant]
     Active Substance: POTASSIUM

REACTIONS (3)
  - Dysphagia [Unknown]
  - Wrong technique in product usage process [Unknown]
  - Palpitations [Unknown]
